FAERS Safety Report 20220118 (Version 2)
Quarter: 2022Q1

REPORT INFORMATION
  Report Type: Spontaneous
  Country: US (occurrence: US)
  Receive Date: 20211222
  Receipt Date: 20220324
  Transmission Date: 20220424
  Serious: No
  Sender: FDA-Public Use
  Company Number: US-BoehringerIngelheim-2021-BI-145174

PATIENT
  Age: 70 Year
  Sex: Female

DRUGS (1)
  1. JARDIANCE [Suspect]
     Active Substance: EMPAGLIFLOZIN
     Indication: Diabetes mellitus

REACTIONS (5)
  - Blood glucose increased [Unknown]
  - Drug ineffective [Unknown]
  - Pollakiuria [Unknown]
  - Gastrointestinal disorder [Unknown]
  - Full blood count abnormal [Unknown]
